FAERS Safety Report 22654123 (Version 1)
Quarter: 2023Q2

REPORT INFORMATION
  Report Type: Report from Study
  Country: AU (occurrence: AU)
  Receive Date: 20230629
  Receipt Date: 20230629
  Transmission Date: 20230722
  Serious: Yes (Life-Threatening, Hospitalization, Other)
  Sender: FDA-Public Use
  Company Number: AU-PFIZER INC-PV202300111680

PATIENT
  Age: 67 Year

DRUGS (2)
  1. LEVETIRACETAM [Suspect]
     Active Substance: LEVETIRACETAM
     Dosage: UNK
  2. ALECTINIB [Suspect]
     Active Substance: ALECTINIB
     Dosage: UNK

REACTIONS (5)
  - Toxic epidermal necrolysis [Recovered/Resolved]
  - Herpes simplex [Recovered/Resolved]
  - Myoclonic epilepsy [Recovered/Resolved]
  - Haematological infection [Recovered/Resolved]
  - Deep vein thrombosis [Recovered/Resolved]
